FAERS Safety Report 5460877-8 (Version None)
Quarter: 2007Q3

REPORT INFORMATION
  Report Type: 
  Country: None (occurrence: None)
  Receive Date: 20070827
  Receipt Date: 20070215
  Transmission Date: 20080115
  Serious: Yes (Other)
  Sender: FDA-Public Use
  Company Number: 258894

PATIENT
  Age: 62 Year
  Sex: Female
  Weight: 74.8 kg

DRUGS (10)
  1. VAGIFEM [Suspect]
     Indication: ILL-DEFINED DISORDER
     Dosage: 1 TAB, QD; VAGINAL
     Route: 067
     Dates: start: 20061121, end: 20061125
  2. VAGIFEM [Suspect]
     Indication: VULVOVAGINAL DRYNESS
     Dosage: 1 TAB, QD; VAGINAL
     Route: 067
     Dates: start: 20061121, end: 20061125
  3. ALLEGRA-D /01367401/ (FEXOFENADINE HYDROCHLORIDE, PSEUDOEPHEDRINE HYDR [Concomitant]
  4. LEVOTHROID [Concomitant]
  5. PHENERGAN /00033001/ (PROMETHAZINE) [Concomitant]
  6. VIOKASE /00014701/ (PANCREATIN) [Concomitant]
  7. PROTONIX /01263201/ (PANTOPRAZOLE) [Concomitant]
  8. SEROQUEL /01270901/ (QUETIAPINE) [Concomitant]
  9. KLONOPIN [Concomitant]
  10. FLONASE (FLUTICASONE PRPIONATE) [Concomitant]

REACTIONS (1)
  - URTICARIA [None]
